FAERS Safety Report 9526656 (Version 2)
Quarter: 2014Q1

REPORT INFORMATION
  Report Type: Report from Study
  Country: JP (occurrence: JP)
  Receive Date: 20130916
  Receipt Date: 20140214
  Transmission Date: 20141002
  Serious: Yes (Other)
  Sender: FDA-Public Use
  Company Number: JP-ABBVIE-13P-087-1147761-00

PATIENT
  Age: 75 Year
  Sex: Male

DRUGS (2)
  1. LIPACREON [Suspect]
     Indication: PANCREATIC INSUFFICIENCY
     Dosage: SACHET; 1800 MILLIGRAM
     Dates: start: 20130105, end: 20130524
  2. LANSOPRAZOLE [Concomitant]
     Indication: ILL-DEFINED DISORDER
     Route: 048
     Dates: start: 20121220, end: 20130706

REACTIONS (5)
  - Weight decreased [Recovering/Resolving]
  - Protein total decreased [Recovering/Resolving]
  - Activities of daily living impaired [Recovering/Resolving]
  - Malnutrition [Unknown]
  - Treatment noncompliance [Unknown]
